FAERS Safety Report 7639906-9 (Version None)
Quarter: 2011Q3

REPORT INFORMATION
  Report Type: 
  Country: None (occurrence: None)
  Receive Date: 20110727
  Receipt Date: 20110720
  Transmission Date: 20111222
  Serious: Yes (Hospitalization)
  Sender: FDA-Public Use
  Company Number: FR-B.I. PHARMACEUTICALS,INC./RIDGEFIELD-2010-DE-04978DE

PATIENT
  Sex: Female

DRUGS (8)
  1. DABIGATRAN [Suspect]
     Indication: CEREBROVASCULAR ACCIDENT PROPHYLAXIS
     Dosage: STRENGTH AND DAILY DOSE: BLINDED
     Route: 048
     Dates: start: 20090209
  2. DABIGATRAN [Suspect]
     Indication: ATRIAL FIBRILLATION
  3. EUTHYRAL [Concomitant]
     Indication: HYPOTHYROIDISM
     Route: 048
     Dates: start: 19860703
  4. MEMANTINE HYDROCHLORIDE [Concomitant]
     Indication: DEMENTIA ALZHEIMER'S TYPE
     Dosage: 30 MG
     Route: 048
     Dates: start: 20080201
  5. MADOPAR [Concomitant]
     Indication: PARKINSONISM
     Dosage: 38.5 MG
     Route: 048
  6. AMIODARONE HCL [Concomitant]
     Indication: ATRIAL FIBRILLATION
     Dosage: 200 MG
     Route: 048
  7. FIXICAL D3 [Concomitant]
     Indication: OSTEOPOROSIS
     Dosage: 1 G
     Route: 048
     Dates: start: 20070119
  8. PANTOPRAZOLE [Concomitant]
     Indication: OESOPHAGITIS
     Dosage: 20 MG
     Route: 048
     Dates: start: 20070314

REACTIONS (2)
  - COGNITIVE DISORDER [None]
  - URINARY TRACT INFECTION [None]
